FAERS Safety Report 15065459 (Version 1)
Quarter: 2018Q2

REPORT INFORMATION
  Report Type: Spontaneous
  Country: US (occurrence: US)
  Receive Date: 20180626
  Receipt Date: 20180626
  Transmission Date: 20180711
  Serious: Yes (Hospitalization)
  Sender: FDA-Public Use
  Company Number: US-AUROBINDO-AUR-APL-2018-014838

PATIENT
  Age: 24 Year
  Sex: Male

DRUGS (5)
  1. DEXMEDETOMIDINE INJECTION [Suspect]
     Active Substance: DEXMEDETOMIDINE
     Indication: ADRENERGIC SYNDROME
     Dosage: UNK
     Route: 042
  2. DIAZEPAM. [Suspect]
     Active Substance: DIAZEPAM
     Indication: ADRENERGIC SYNDROME
     Dosage: 45 MILLIGRAM
     Route: 065
  3. DIAZEPAM. [Suspect]
     Active Substance: DIAZEPAM
     Dosage: 5 MILLIGRAM
     Route: 042
  4. CLONIDINE. [Suspect]
     Active Substance: CLONIDINE
     Indication: ADRENERGIC SYNDROME
     Dosage: 2.4 MILLIGRAM
     Route: 065
  5. CLONAZEPAM. [Suspect]
     Active Substance: CLONAZEPAM
     Indication: ADRENERGIC SYNDROME
     Dosage: 2 MILLIGRAM
     Route: 065

REACTIONS (2)
  - Paradoxical drug reaction [Unknown]
  - Sedation [Unknown]
